FAERS Safety Report 4983286-4 (Version None)
Quarter: 2006Q2

REPORT INFORMATION
  Report Type: 
  Country: None (occurrence: None)
  Receive Date: 20060426
  Receipt Date: 20060330
  Transmission Date: 20061013
  Serious: Yes (Death)
  Sender: FDA-Public Use
  Company Number: JP-BRISTOL-MYERS SQUIBB COMPANY-13333604

PATIENT
  Age: 65 Year
  Sex: Male

DRUGS (5)
  1. TAXOL [Suspect]
     Indication: GASTRIC CANCER
     Route: 041
  2. DEXAMETHASONE SODIUM PHOSPHATE [Concomitant]
  3. DIPHENHYDRAMINE HCL [Concomitant]
  4. RANITIDINE HCL [Concomitant]
  5. KYTRIL [Concomitant]
     Route: 042

REACTIONS (1)
  - CARDIAC FAILURE [None]
